FAERS Safety Report 7297796-0 (Version None)
Quarter: 2011Q1

REPORT INFORMATION
  Report Type: 
  Country: None (occurrence: None)
  Receive Date: 20110217
  Receipt Date: 20110204
  Transmission Date: 20110831
  Serious: Yes (Hospitalization)
  Sender: FDA-Public Use
  Company Number: JP-BAYER-201012915BYL

PATIENT
  Age: 71 Year
  Sex: Male

DRUGS (4)
  1. NEXAVAR [Suspect]
     Dosage: 400 MG, QD
     Route: 048
     Dates: start: 20100801
  2. NEXAVAR [Suspect]
     Dosage: 800 MG (DAILY DOSE), , ORAL
     Route: 048
  3. CISPLATIN [Concomitant]
     Dosage: 100 MG (DAILY DOSE), , INTRA-ARTERIAL
     Route: 013
     Dates: start: 20091001
  4. NEXAVAR [Suspect]
     Indication: HEPATIC NEOPLASM MALIGNANT
     Dosage: 800 MG (DAILY DOSE), , ORAL
     Route: 048
     Dates: start: 20090911

REACTIONS (3)
  - DIARRHOEA [None]
  - SKIN DISORDER [None]
  - HEPATIC ENCEPHALOPATHY [None]
